FAERS Safety Report 8232587-5 (Version None)
Quarter: 2012Q1

REPORT INFORMATION
  Report Type: 
  Country: None (occurrence: None)
  Receive Date: 20120323
  Receipt Date: 20120319
  Transmission Date: 20120608
  Serious: Yes (Death, Hospitalization)
  Sender: FDA-Public Use
  Company Number: DE-B.I. PHARMACEUTICALS,INC./RIDGEFIELD-2012-DE-00784DE

PATIENT
  Age: 87 Year
  Sex: Female

DRUGS (2)
  1. PRADAXA [Suspect]
     Indication: ATRIAL FIBRILLATION
  2. PRADAXA [Suspect]
     Indication: INTRACARDIAC THROMBUS

REACTIONS (10)
  - HAEMOGLOBIN DECREASED [None]
  - INTERNATIONAL NORMALISED RATIO INCREASED [None]
  - ACTIVATED PARTIAL THROMBOPLASTIN TIME PROLONGED [None]
  - CREATININE RENAL CLEARANCE DECREASED [None]
  - BLOOD CREATININE INCREASED [None]
  - CARDIOGENIC SHOCK [None]
  - HAEMOPTYSIS [None]
  - HAEMATOCRIT DECREASED [None]
  - PULMONARY HAEMORRHAGE [None]
  - PROTHROMBIN TIME PROLONGED [None]
